FAERS Safety Report 8142821-8 (Version None)
Quarter: 2012Q1

REPORT INFORMATION
  Report Type: 
  Country: None (occurrence: None)
  Receive Date: 20120216
  Receipt Date: 20111216
  Transmission Date: 20120608
  Serious: Yes (Hospitalization)
  Sender: FDA-Public Use
  Company Number: US-AMGEN-USASP2011045029

PATIENT
  Age: 62 Year
  Sex: Male

DRUGS (3)
  1. ENBREL [Suspect]
     Indication: RHEUMATOID ARTHRITIS
     Dosage: UNK
     Dates: start: 20100318
  2. METHOTREXATE [Concomitant]
     Dosage: UNK
  3. PROLIA [Suspect]
     Indication: OSTEOPOROSIS
     Dosage: 60 MG, UNK
     Route: 058
     Dates: start: 20110729, end: 20110729

REACTIONS (5)
  - SWELLING FACE [None]
  - PAIN [None]
  - OROPHARYNGEAL BLISTERING [None]
  - CELLULITIS [None]
  - PYREXIA [None]
